FAERS Safety Report 7352613-5 (Version None)
Quarter: 2011Q1

REPORT INFORMATION
  Report Type: 
  Country: None (occurrence: None)
  Receive Date: 20110301
  Receipt Date: 20100128
  Transmission Date: 20110831
  Serious: Yes (Other)
  Sender: FDA-Public Use
  Company Number: RB-01713-2010

PATIENT

DRUGS (2)
  1. SUBOXONE [Suspect]
     Indication: DRUG DEPENDENCE
     Dosage: (UNIT DOSE KNOWN, 16-24MG DAILY TRANSPLACENTAL)
     Route: 064
     Dates: start: 20080801, end: 20081130
  2. SUBUTEX [Suspect]
     Indication: DRUG DEPENDENCE
     Dosage: (24 MG TRANSPLACENTAL)
     Route: 064
     Dates: start: 20081201, end: 20090616

REACTIONS (1)
  - DRUG WITHDRAWAL SYNDROME NEONATAL [None]
